FAERS Safety Report 23446334 (Version 3)
Quarter: 2024Q4

REPORT INFORMATION
  Report Type: Spontaneous
  Country: BE (occurrence: BE)
  Receive Date: 20240126
  Receipt Date: 20241018
  Transmission Date: 20250114
  Serious: Yes (Death, Life-Threatening, Other)
  Sender: RECORDATI
  Company Number: BE-ORPHANEU-2024000419

PATIENT

DRUGS (4)
  1. CARBAGLU [Suspect]
     Active Substance: CARGLUMIC ACID
     Indication: Propionic acidaemia
     Dosage: 50 MILLIGRAM PER KILOGRAM PER DAY (IN 2 DIVIDED DOSES)
     Dates: start: 202311
  2. LEVOCARNITINE [Concomitant]
     Active Substance: LEVOCARNITINE
     Indication: Propionic acidaemia
     Route: 048
  3. CARVEDILOL [Concomitant]
     Active Substance: CARVEDILOL
     Indication: Cardiomyopathy
     Dosage: UNK
     Route: 048
     Dates: start: 202310
  4. FUROSEMIDE [Concomitant]
     Active Substance: FUROSEMIDE
     Indication: Cardiomyopathy
     Dosage: UNK
     Route: 048
     Dates: start: 202310

REACTIONS (6)
  - Cardio-respiratory arrest [Fatal]
  - Influenza [Fatal]
  - Respiratory failure [Unknown]
  - Electrocardiogram repolarisation abnormality [Unknown]
  - Ejection fraction decreased [Unknown]
  - Vomiting [Unknown]

NARRATIVE: CASE EVENT DATE: 20230101
